FAERS Safety Report 13351872 (Version 1)
Quarter: 2017Q1

REPORT INFORMATION
  Report Type: Spontaneous
  Country: US (occurrence: US)
  Receive Date: 20170320
  Receipt Date: 20170320
  Transmission Date: 20170429
  Serious: Yes (Other)
  Sender: FDA-Public Use
  Company Number: None

PATIENT
  Age: 34 Year
  Sex: Female
  Weight: 95.34 kg

DRUGS (13)
  1. NIGHTTIME SLEEP-AID DIPHENHYDRAMINE HCL [Concomitant]
  2. VITAMIN C [Concomitant]
     Active Substance: ASCORBIC ACID
  3. ERYTHROMYCIN OPHTHALMIC OINTMENT [Concomitant]
     Active Substance: ERYTHROMYCIN
  4. KETOCONAZOLE CREAM [Concomitant]
     Active Substance: KETOCONAZOLE
  5. WOMEN^S LAXATIVE BISA [Concomitant]
  6. TYLENOL REGULAR STRENGTH [Concomitant]
     Active Substance: ACETAMINOPHEN
  7. MICONAZOLE 7 [Concomitant]
     Active Substance: MICONAZOLE NITRATE
  8. ACYCLOVIR. [Concomitant]
     Active Substance: ACYCLOVIR
  9. TRIAMCINOLONE ACETOMIDE CREAM [Concomitant]
  10. AZO YEAST PLUS [Concomitant]
  11. TETRACYCLINE [Suspect]
     Active Substance: TETRACYCLINE
     Indication: ACNE
     Dosage: ?          QUANTITY:4 ES?TETANUS.;?
     Route: 048
     Dates: start: 20170215, end: 201703
  12. TRUBIOTICS [Concomitant]
     Active Substance: BIFIDOBACTERIUM LONGUM\LACTOBACILLUS ACIDOPHILUS
  13. MICONAZOLE NITRATE VAGINAL CREAM [Concomitant]

REACTIONS (1)
  - Therapeutic response unexpected [None]

NARRATIVE: CASE EVENT DATE: 20170311
